APPROVED DRUG PRODUCT: TERIFLUNOMIDE
Active Ingredient: TERIFLUNOMIDE
Strength: 7MG
Dosage Form/Route: TABLET;ORAL
Application: A218663 | Product #001
Applicant: CONCORD BIOTECH LTD
Approved: Apr 7, 2025 | RLD: No | RS: No | Type: DISCN